FAERS Safety Report 8423292-0 (Version None)
Quarter: 2012Q2

REPORT INFORMATION
  Report Type: 
  Country: None (occurrence: None)
  Receive Date: 20120608
  Receipt Date: 20120606
  Transmission Date: 20120825
  Serious: Yes (Disabling)
  Sender: FDA-Public Use
  Company Number: JP-BAYER-201010228BYL

PATIENT
  Age: 14 Year
  Sex: Male
  Weight: 48 kg

DRUGS (11)
  1. OMNISCAN [Suspect]
     Indication: NUCLEAR MAGNETIC RESONANCE IMAGING
     Dosage: 10 ML (DAILY DOSE), ONCE, INTRAVENOUS
     Route: 042
     Dates: start: 20061228, end: 20061228
  2. CALCIUM CARBONATE [Concomitant]
     Indication: HYPERPHOSPHATAEMIA
     Route: 048
  3. OMNISCAN [Suspect]
     Dosage: 10 ML (DAILY DOSE), ONCE, INTRAVENOUS
     Route: 042
     Dates: start: 20070112, end: 20070112
  4. CALCIUM CARBONATE [Concomitant]
     Indication: HYPERPHOSPHATAEMIA
     Route: 048
  5. OMNISCAN [Suspect]
     Indication: GLAUCOMA
     Dosage: 10 ML (DAILY DOSE), ONCE, INTRAVENOUS
     Route: 042
     Dates: start: 20060904, end: 20060904
  6. DEXAMETHASONE [Concomitant]
     Indication: INFLAMMATORY PSEUDOTUMOUR
     Route: 065
  7. MAGNEVIST [Suspect]
     Dosage: 10 ML (DAILY DOSE), ONCE, INTRAVENOUS
     Route: 042
     Dates: start: 20041217, end: 20041217
  8. ALLOPURINOL [Concomitant]
     Indication: HYPERURICAEMIA
     Route: 048
  9. AMLODIPINE [Concomitant]
     Indication: HYPERTENSION
     Route: 048
  10. MAGNEVIST [Suspect]
     Indication: NUCLEAR MAGNETIC RESONANCE IMAGING
     Dosage: 10 ML (DAILY DOSE), ONCE, INTRAVENOUS
     Route: 042
     Dates: start: 20040724, end: 20040724
  11. FERROUS CITRATE [Concomitant]
     Indication: ANAEMIA
     Route: 048

REACTIONS (18)
  - HYPERKERATOSIS [None]
  - PYREXIA [None]
  - ERYTHEMA [None]
  - NEPHROGENIC SYSTEMIC FIBROSIS [None]
  - OEDEMA PERIPHERAL [None]
  - RASH PAPULAR [None]
  - JOINT CONTRACTURE [None]
  - WHITE BLOOD CELL COUNT INCREASED [None]
  - HYPOPROTEINAEMIA [None]
  - INFLAMMATION [None]
  - MUSCLE CONTRACTURE [None]
  - SKIN HYPERTROPHY [None]
  - SCLERODERMA [None]
  - GRIP STRENGTH DECREASED [None]
  - HYPERTHERMIA [None]
  - COLLAGEN DISORDER [None]
  - PAIN IN EXTREMITY [None]
  - PRURITUS [None]
